FAERS Safety Report 21359602 (Version 5)
Quarter: 2023Q2

REPORT INFORMATION
  Report Type: Spontaneous
  Country: DE (occurrence: DE)
  Receive Date: 20220921
  Receipt Date: 20230529
  Transmission Date: 20230721
  Serious: Yes (Hospitalization, Other)
  Sender: FDA-Public Use
  Company Number: DE-PFIZER INC-PV202200066262

PATIENT
  Age: 92 Year
  Sex: Male
  Weight: 79 kg

DRUGS (7)
  1. PANTOPRAZOLE [Suspect]
     Active Substance: PANTOPRAZOLE
     Dosage: 2 DOSAGE FORM, QD
     Route: 065
     Dates: start: 20220718
  2. PAXLOVID [Suspect]
     Active Substance: NIRMATRELVIR\RITONAVIR
     Indication: COVID-19
     Dosage: [PF-07321332 300 MG]/[RITONAVIR 100 MG]; 2X/DAY
     Route: 048
     Dates: start: 20220718, end: 20220723
  3. CARVEDILOL [Concomitant]
     Active Substance: CARVEDILOL
     Dosage: 18.5 MILLIGRAM, QD
  4. SIMVASTATIN [Concomitant]
     Active Substance: SIMVASTATIN
     Dosage: 1 DOSAGE FORM, QD
  5. HYDROCHLOROTHIAZIDE\IRBESARTAN [Concomitant]
     Active Substance: HYDROCHLOROTHIAZIDE\IRBESARTAN
     Dosage: 1 DOSAGE FORM, QD
  6. METAMIZOLE [Concomitant]
     Active Substance: METAMIZOLE
     Dosage: 4 DOSAGE FORM, QD
     Dates: start: 20220718
  7. ASPIRIN [Concomitant]
     Active Substance: ASPIRIN
     Dosage: 1 DOSAGE FORM, QD

REACTIONS (8)
  - Pulmonary embolism [Recovered/Resolved]
  - Pneumonia [Unknown]
  - Cardiac failure [Unknown]
  - Pleural effusion [Unknown]
  - Cholelithiasis [Unknown]
  - Aortic arteriosclerosis [Unknown]
  - Respiratory failure [Unknown]
  - Hyperventilation [Unknown]

NARRATIVE: CASE EVENT DATE: 20220101
